FAERS Safety Report 8495136-2 (Version None)
Quarter: 2012Q3

REPORT INFORMATION
  Report Type: 
  Country: None (occurrence: None)
  Receive Date: 20120709
  Receipt Date: 20120628
  Transmission Date: 20120928
  Serious: Yes (Hospitalization, Other)
  Sender: FDA-Public Use
  Company Number: US-VIROPHARMA INCORPORATED-20120303CINRY2706

PATIENT
  Sex: Female

DRUGS (21)
  1. PROTONIX [Concomitant]
     Indication: PRODUCT USED FOR UNKNOWN INDICATION
     Dosage: UNKNOWN
     Route: 048
     Dates: start: 20100730
  2. NORCO [Concomitant]
     Indication: PAIN
     Dosage: 10-325 MG
     Route: 048
     Dates: start: 20100730
  3. ALBUTEROL [Concomitant]
     Indication: DYSPNOEA
     Dosage: UNKNOWN
     Dates: start: 20100730
  4. FIRAZYR [Concomitant]
     Indication: HEREDITARY ANGIOEDEMA
     Dosage: UNKNOWN
     Route: 065
  5. CINRYZE [Suspect]
     Indication: HEREDITARY ANGIOEDEMA
     Dates: start: 20100525, end: 20100728
  6. SINEQUAN [Concomitant]
     Indication: DEPRESSION
     Dosage: UNKNOWN
     Route: 048
     Dates: start: 20100730
  7. VALTREX [Concomitant]
     Indication: PRODUCT USED FOR UNKNOWN INDICATION
     Dosage: UNKNOWN
     Route: 048
     Dates: start: 20100730
  8. EFFEXOR [Concomitant]
     Indication: DEPRESSION
     Dosage: UNKNOWN
     Route: 048
     Dates: start: 20100730
  9. PLAQUENIL [Concomitant]
     Indication: SYSTEMIC LUPUS ERYTHEMATOSUS
     Dosage: UNKNOWN
     Route: 048
     Dates: start: 20100730
  10. CELLCEPT [Concomitant]
     Indication: SYSTEMIC LUPUS ERYTHEMATOSUS
     Dosage: UNKNOWN
     Route: 065
  11. CINRYZE [Suspect]
     Dates: start: 20110401
  12. BENTYL [Concomitant]
     Indication: PRODUCT USED FOR UNKNOWN INDICATION
     Dosage: UNKNOWN
     Route: 065
  13. PREDNISONE [Concomitant]
     Indication: PRODUCT USED FOR UNKNOWN INDICATION
     Dosage: UNKNOWN
     Route: 048
     Dates: start: 20100730
  14. VICODIN [Concomitant]
     Indication: PAIN
     Dosage: 5-500 MG
     Route: 048
     Dates: start: 20100730
  15. CINRYZE [Suspect]
     Dates: start: 20110303, end: 20110401
  16. DARVOCET-N 100 [Concomitant]
     Indication: PAIN
     Dosage: UNKNOWN
     Route: 048
     Dates: start: 20100730
  17. XANAX [Concomitant]
     Indication: DEPRESSION
     Dosage: UNKNOWN
     Route: 048
     Dates: start: 20100730
  18. CINRYZE [Suspect]
     Dates: start: 20100729, end: 20110302
  19. SOMA [Concomitant]
     Indication: PRODUCT USED FOR UNKNOWN INDICATION
     Dosage: UNKNOWN
     Route: 048
     Dates: start: 20100730
  20. ALDACTONE [Concomitant]
     Indication: ESSENTIAL HYPERTENSION
     Dosage: UNKNOWN
     Route: 048
     Dates: start: 20100730
  21. LASIX [Concomitant]
     Indication: PRODUCT USED FOR UNKNOWN INDICATION
     Dosage: UNKNOWN
     Route: 065

REACTIONS (7)
  - SEPSIS [None]
  - HEREDITARY ANGIOEDEMA [None]
  - DEVICE RELATED INFECTION [None]
  - LUPUS NEPHRITIS [None]
  - CONDITION AGGRAVATED [None]
  - RENAL IMPAIRMENT [None]
  - INAPPROPRIATE SCHEDULE OF DRUG ADMINISTRATION [None]
